FAERS Safety Report 9855719 (Version 6)
Quarter: 2015Q2

REPORT INFORMATION
  Report Type: Spontaneous
  Country: US (occurrence: US)
  Receive Date: 20140130
  Receipt Date: 20150528
  Transmission Date: 20150821
  Serious: Yes (Hospitalization, Other)
  Sender: FDA-Public Use
  Company Number: US-009507513-1401USA012045

PATIENT
  Sex: Female

DRUGS (3)
  1. ALENDRONATE SODIUM. [Suspect]
     Active Substance: ALENDRONATE SODIUM
     Indication: OSTEOPOROSIS
     Dosage: 35 MG, UNK
     Route: 048
     Dates: start: 20081021, end: 201212
  2. FOSAMAX [Suspect]
     Active Substance: ALENDRONATE SODIUM
     Indication: OSTEOPOROSIS
     Dosage: 70 MG, QW
     Route: 048
     Dates: start: 20011119, end: 2002
  3. ACTONEL [Suspect]
     Active Substance: RISEDRONATE SODIUM
     Indication: OSTEOPOROSIS
     Dosage: 30 MG, QW
     Dates: start: 2002

REACTIONS (16)
  - Osteoarthritis [Unknown]
  - Gastrooesophageal reflux disease [Unknown]
  - Hypertension [Unknown]
  - Dyspepsia [Unknown]
  - Femur fracture [Recovered/Resolved]
  - Radiculopathy [Unknown]
  - Femur fracture [Unknown]
  - Hot flush [Unknown]
  - Limb operation [Unknown]
  - Joint arthroplasty [Unknown]
  - Constipation [Unknown]
  - Blood calcium increased [Unknown]
  - Intramedullary rod insertion [Unknown]
  - Haemorrhagic anaemia [Unknown]
  - Lumbar spinal stenosis [Unknown]
  - Foot operation [Unknown]

NARRATIVE: CASE EVENT DATE: 200111
